FAERS Safety Report 8313229-7 (Version None)
Quarter: 2012Q2

REPORT INFORMATION
  Report Type: 
  Country: None (occurrence: None)
  Receive Date: 20120426
  Receipt Date: 20120425
  Transmission Date: 20120825
  Serious: No
  Sender: FDA-Public Use
  Company Number: US-BAYER-2012-040371

PATIENT
  Sex: Female
  Weight: 64 kg

DRUGS (9)
  1. BETASERON [Suspect]
     Dosage: 0.25 MG (1 ML), QOD
     Route: 058
  2. LEVEMIR [Concomitant]
  3. CYMBALTA [Concomitant]
     Dosage: 30 MG, UNK
  4. CLONIDINE [Concomitant]
     Dosage: 0.1 MG, UNK
  5. LEVOTHYROXINE SODIUM [Concomitant]
     Dosage: 25 ?G, UNK
  6. GABAPENTIN [Concomitant]
     Dosage: 100 MG, UNK
  7. METFORMIN HCL [Concomitant]
     Dosage: 500 MG, UNK
  8. AVAPRO [Concomitant]
     Dosage: 75 MG, UNK
  9. METOPROLOL TARTRATE [Concomitant]
     Dosage: 25 MG, UNK

REACTIONS (4)
  - INJECTION SITE DISCOLOURATION [None]
  - INJECTION SITE REACTION [None]
  - INJECTION SITE SWELLING [None]
  - INJECTION SITE PRURITUS [None]
